FAERS Safety Report 4480512-5 (Version None)
Quarter: 2004Q4

REPORT INFORMATION
  Report Type: 
  Country: None (occurrence: None)
  Receive Date: 20041019
  Receipt Date: 20041011
  Transmission Date: 20050328
  Serious: Yes (Life-Threatening, Hospitalization)
  Sender: FDA-Public Use
  Company Number: 2004GB02436

PATIENT
  Age: 57 Year
  Sex: Female

DRUGS (2)
  1. LISINOPRIL [Suspect]
     Indication: HYPERTENSION
     Dosage: 10 MG DAILY PO
     Route: 048
     Dates: start: 20021201, end: 20021223
  2. BENDROFLUMETHAZIDE [Concomitant]

REACTIONS (3)
  - ANGIONEUROTIC OEDEMA [None]
  - OBSTRUCTIVE AIRWAYS DISORDER [None]
  - PROCEDURAL HYPERTENSION [None]
